FAERS Safety Report 5731489-3 (Version None)
Quarter: 2008Q2

REPORT INFORMATION
  Report Type: 
  Country: None (occurrence: None)
  Receive Date: 20080506
  Receipt Date: 20080506
  Transmission Date: 20081010
  Serious: Yes (Other)
  Sender: FDA-Public Use
  Company Number: None

PATIENT
  Age: 59 Year
  Sex: Male
  Weight: 122.9248 kg

DRUGS (2)
  1. DIGITEK 125 MCG 62794014501 [Suspect]
     Indication: ARRHYTHMIA
     Dosage: 1 TABLET DAILY PO
     Route: 048
     Dates: start: 20080124, end: 20080327
  2. DIGITEK 125 MCG 62794014510 [Suspect]
     Dosage: 1 TABKET DAILY PO
     Route: 048

REACTIONS (5)
  - CHEST PAIN [None]
  - DIZZINESS [None]
  - HEADACHE [None]
  - HEART RATE INCREASED [None]
  - NAUSEA [None]
